FAERS Safety Report 7926515-7 (Version None)
Quarter: 2011Q4

REPORT INFORMATION
  Report Type: 
  Country: None (occurrence: None)
  Receive Date: 20111118
  Receipt Date: 20111111
  Transmission Date: 20120403
  Serious: No
  Sender: FDA-Public Use
  Company Number: US-BIOGENIDEC-2011BI043386

PATIENT
  Age: 41 Year
  Sex: Female

DRUGS (5)
  1. AVONEX [Concomitant]
     Indication: MULTIPLE SCLEROSIS
     Route: 030
     Dates: start: 20070101
  2. TYSABRI [Suspect]
     Indication: MULTIPLE SCLEROSIS
     Route: 042
     Dates: start: 20071001
  3. TYSABRI [Suspect]
     Route: 042
     Dates: start: 20090102
  4. TYSABRI [Suspect]
     Route: 042
     Dates: start: 20080917, end: 20081022
  5. TYSABRI [Suspect]
     Route: 042
     Dates: start: 20071130, end: 20080407

REACTIONS (1)
  - GAIT DISTURBANCE [None]
